FAERS Safety Report 10870239 (Version 2)
Quarter: 2015Q1

REPORT INFORMATION
  Report Type: Spontaneous
  Country: CU (occurrence: CU)
  Receive Date: 20150226
  Receipt Date: 20150304
  Transmission Date: 20150721
  Serious: Yes (Other)
  Sender: FDA-Public Use
  Company Number: CU-SA-2015SA021941

PATIENT
  Age: 5 Year
  Sex: Male
  Weight: 15 kg

DRUGS (4)
  1. CLAFORAN [Suspect]
     Active Substance: CEFOTAXIME SODIUM
     Indication: RESPIRATORY TRACT INFECTION
     Route: 042
  2. URSOCHOL [Concomitant]
     Indication: CHOLELITHIASIS
     Route: 048
  3. MYOZYME [Concomitant]
     Active Substance: ALGLUCOSIDASE ALFA
     Dates: start: 201407
  4. ROCEPHIN [Suspect]
     Active Substance: CEFTRIAXONE SODIUM
     Indication: RESPIRATORY TRACT INFECTION
     Route: 042

REACTIONS (2)
  - Cholangitis [Recovering/Resolving]
  - Gamma-glutamyltransferase increased [Recovering/Resolving]

NARRATIVE: CASE EVENT DATE: 201412
